FAERS Safety Report 10231313 (Version 1)
Quarter: 2014Q2

REPORT INFORMATION
  Report Type: Spontaneous
  Country: GB (occurrence: GB)
  Receive Date: 20140611
  Receipt Date: 20140611
  Transmission Date: 20141212
  Serious: Yes (Other)
  Sender: FDA-Public Use
  Company Number: GB-GLAXOSMITHKLINE-B1002597A

PATIENT
  Age: 46 Year
  Sex: Female

DRUGS (2)
  1. CLENIL MODULITE [Suspect]
     Indication: BRONCHIECTASIS
     Route: 055
     Dates: start: 20140426, end: 20140502
  2. ADCAL-D3 [Concomitant]

REACTIONS (1)
  - Muscular weakness [Recovered/Resolved with Sequelae]
